FAERS Safety Report 20156786 (Version 2)
Quarter: 2023Q1

REPORT INFORMATION
  Report Type: Spontaneous
  Country: US (occurrence: US)
  Receive Date: 20211207
  Receipt Date: 20230202
  Transmission Date: 20230418
  Serious: No
  Sender: FDA-Public Use
  Company Number: US-KYOWAKIRIN-2021BKK020103

PATIENT

DRUGS (3)
  1. NOURIANZ [Suspect]
     Active Substance: ISTRADEFYLLINE
     Indication: Parkinson^s disease
     Dosage: 20 MG: TAKE UP TO 2 TABLETS BY MOUTH EVERY MORNING
     Route: 048
     Dates: start: 20201113
  2. NOURIANZ [Suspect]
     Active Substance: ISTRADEFYLLINE
     Indication: Parkinson^s disease
     Dosage: 40 MG, QD (EVERY MORNING)
     Route: 048
     Dates: start: 20220115
  3. TRIMETHOPRIM [Concomitant]
     Active Substance: TRIMETHOPRIM
     Indication: Product used for unknown indication
     Dosage: UNK (SOL POLYMYXN)
     Route: 065

REACTIONS (5)
  - Frustration tolerance decreased [Unknown]
  - Condition aggravated [Unknown]
  - Conjunctivitis [Unknown]
  - Product dose omission issue [Unknown]
  - Product use issue [Unknown]
